FAERS Safety Report 25969125 (Version 3)
Quarter: 2025Q4

REPORT INFORMATION
  Report Type: Spontaneous
  Country: US (occurrence: US)
  Receive Date: 20251028
  Receipt Date: 20251218
  Transmission Date: 20260117
  Serious: Yes (Hospitalization)
  Sender: BIOVITRUM
  Company Number: US-BIOVITRUM-2025-US-014744

PATIENT
  Age: 70 Year
  Sex: Female

DRUGS (1)
  1. DOPTELET [Suspect]
     Active Substance: AVATROMBOPAG MALEATE
     Indication: Immune thrombocytopenia
     Dosage: DAILY/1 TAB DAILY
     Route: 048

REACTIONS (3)
  - Full blood count abnormal [Unknown]
  - Platelet count decreased [Unknown]
  - Product use issue [Unknown]
